FAERS Safety Report 4612393-0 (Version None)
Quarter: 2005Q1

REPORT INFORMATION
  Report Type: 
  Country: None (occurrence: None)
  Receive Date: 20050316
  Receipt Date: 20050304
  Transmission Date: 20050727
  Serious: Yes (Death)
  Sender: FDA-Public Use
  Company Number: USA-2004-0018128

PATIENT
  Age: 43 Year
  Sex: Male

DRUGS (1)
  1. MS CONTIN [Suspect]
     Indication: PAIN

REACTIONS (8)
  - ACCIDENTAL DEATH [None]
  - ANOXIC ENCEPHALOPATHY [None]
  - COMA [None]
  - HEPATIC FAILURE [None]
  - IRRITABILITY [None]
  - MULTIPLE DRUG OVERDOSE ACCIDENTAL [None]
  - RENAL FAILURE ACUTE [None]
  - RESPIRATORY ARREST [None]
